FAERS Safety Report 4555357-8 (Version None)
Quarter: 2005Q1

REPORT INFORMATION
  Report Type: 
  Country: None (occurrence: None)
  Receive Date: 20050118
  Receipt Date: 20050118
  Transmission Date: 20050727
  Serious: Yes (Other)
  Sender: FDA-Public Use
  Company Number: None

PATIENT
  Sex: Male
  Weight: 72.5755 kg

DRUGS (3)
  1. AVODART [Suspect]
     Indication: BENIGN PROSTATIC HYPERPLASIA
     Dosage: 0.5 MG  QD ORAL
     Route: 048
     Dates: start: 20041007, end: 20041106
  2. DIAZEPAM [Concomitant]
  3. VIAGRA [Concomitant]

REACTIONS (1)
  - ABDOMINAL PAIN UPPER [None]
